FAERS Safety Report 7740695-8 (Version None)
Quarter: 2011Q3

REPORT INFORMATION
  Report Type: 
  Country: None (occurrence: None)
  Receive Date: 20110909
  Receipt Date: 20110830
  Transmission Date: 20111222
  Serious: Yes (Other)
  Sender: FDA-Public Use
  Company Number: FR-ASTRAZENECA-2011SE18985

PATIENT
  Age: 858 Month
  Sex: Female
  Weight: 74 kg

DRUGS (5)
  1. SYMBICORT [Suspect]
     Indication: BRONCHITIS CHRONIC
     Dosage: 320/9 UG PER DOSE 2 INHALATIONS TWICE DAILY
     Route: 055
     Dates: start: 20080401
  2. VENTOLIN [Concomitant]
     Dosage: AS REQUIRED
  3. INDAPAMIDE [Concomitant]
     Indication: HYPERTENSION
  4. LEXOMIL [Concomitant]
     Indication: DEPRESSION
  5. PRAZEPAM [Concomitant]
     Indication: DEPRESSION

REACTIONS (3)
  - VOCAL CORD DISORDER [None]
  - VOCAL CORD INFLAMMATION [None]
  - DYSPHONIA [None]
